FAERS Safety Report 4534248-2 (Version None)
Quarter: 2004Q4

REPORT INFORMATION
  Report Type: 
  Country: None (occurrence: None)
  Receive Date: 20041222
  Receipt Date: 20041216
  Transmission Date: 20050328
  Serious: Yes (Congenital Anomaly)
  Sender: FDA-Public Use
  Company Number: 200419679US

PATIENT
  Sex: 0

DRUGS (9)
  1. ARAVA [Suspect]
     Dosage: DOSE: UNK
  2. ROFECOXIB [Concomitant]
     Dates: end: 20040408
  3. INFLIXIMAB [Concomitant]
     Dates: end: 20040331
  4. PREDNISONE [Concomitant]
     Dates: end: 20041117
  5. EXCEDRIN (MIGRAINE) [Concomitant]
     Dates: end: 20040609
  6. TUMS [Concomitant]
  7. MICONAZOLE [Concomitant]
     Dates: start: 20040807, end: 20040814
  8. CHOLESTYRAMINE [Concomitant]
     Dates: start: 20040517, end: 20040531
  9. ANTIBIOTICS [Concomitant]
     Dates: start: 20040821, end: 20040831

REACTIONS (2)
  - DRUG EXPOSURE DURING PREGNANCY [None]
  - HYDRONEPHROSIS [None]
